FAERS Safety Report 22336379 (Version 3)
Quarter: 2024Q3

REPORT INFORMATION
  Report Type: Report from Study
  Country: US (occurrence: US)
  Receive Date: 20230518
  Receipt Date: 20240826
  Transmission Date: 20241016
  Serious: Yes (Life-Threatening, Hospitalization, Disabling, Other)
  Sender: NOVARTIS
  Company Number: US-002147023-NVSC2023US113121

PATIENT
  Age: 59 Year
  Sex: Male
  Weight: 78.005 kg

DRUGS (1)
  1. ENTRESTO [Suspect]
     Active Substance: SACUBITRIL\VALSARTAN
     Indication: Cardiac failure congestive
     Dosage: 1 DOSAGE FORM, BID
     Route: 048
     Dates: start: 202303

REACTIONS (5)
  - Urinary tract infection [Unknown]
  - Blood urine present [Unknown]
  - Cerebrovascular accident [Unknown]
  - Aphasia [Recovering/Resolving]
  - Product use issue [Not Recovered/Not Resolved]

NARRATIVE: CASE EVENT DATE: 20230319
